FAERS Safety Report 7943430-3 (Version None)
Quarter: 2011Q4

REPORT INFORMATION
  Report Type: 
  Country: None (occurrence: None)
  Receive Date: 20111128
  Receipt Date: 20110303
  Transmission Date: 20120403
  Serious: No
  Sender: FDA-Public Use
  Company Number: US-TEVA-269557USA

PATIENT

DRUGS (1)
  1. CARBOPLATIN [Suspect]
     Dosage: 10 MG/ML
     Dates: start: 20110101

REACTIONS (2)
  - INJECTION SITE EXTRAVASATION [None]
  - SKIN DISCOLOURATION [None]
